FAERS Safety Report 10586931 (Version 1)
Quarter: 2014Q4

REPORT INFORMATION
  Report Type: Spontaneous
  Country: US (occurrence: None)
  Receive Date: 20141114
  Receipt Date: 20141114
  Transmission Date: 20150529
  Serious: Yes (Disabling)
  Sender: FDA-Public Use
  Company Number: None

PATIENT
  Age: 37 Year
  Sex: Female
  Weight: 74.84 kg

DRUGS (2)
  1. CLEARLAX [Suspect]
     Active Substance: POLYETHYLENE GLYCOL 3350
     Indication: CONSTIPATION
     Route: 048
     Dates: start: 20141003, end: 20141111
  2. CLEARLAX [Suspect]
     Active Substance: POLYETHYLENE GLYCOL 3350
     Indication: PREGNANCY
     Route: 048
     Dates: start: 20141003, end: 20141111

REACTIONS (5)
  - Abdominal pain upper [None]
  - Gastrooesophageal reflux disease [None]
  - Pain [None]
  - Depression [None]
  - Exposure during pregnancy [None]

NARRATIVE: CASE EVENT DATE: 20141113
